FAERS Safety Report 12081669 (Version 1)
Quarter: 2016Q1

REPORT INFORMATION
  Report Type: Spontaneous
  Country: US (occurrence: US)
  Receive Date: 20160216
  Receipt Date: 20160216
  Transmission Date: 20160526
  Serious: No
  Sender: FDA-Public Use
  Company Number: US-PERRIGO-15US002854

PATIENT
  Age: 3 Year
  Sex: Female
  Weight: 13.61 kg

DRUGS (2)
  1. IBUPROFEN. [Suspect]
     Active Substance: IBUPROFEN
     Indication: ACCIDENTAL EXPOSURE TO PRODUCT
     Dosage: UNK, SINGLE
     Route: 048
     Dates: start: 20150312, end: 20150312
  2. IBUPROFEN. [Suspect]
     Active Substance: IBUPROFEN
     Indication: PRODUCT USED FOR UNKNOWN INDICATION
     Dosage: 100 MG, SINGLE
     Route: 048
     Dates: start: 20150312, end: 20150312

REACTIONS (2)
  - Accidental exposure to product [Unknown]
  - Papule [Unknown]

NARRATIVE: CASE EVENT DATE: 20150312
